FAERS Safety Report 18879488 (Version 2)
Quarter: 2021Q1

REPORT INFORMATION
  Report Type: Report from Study
  Country: US (occurrence: US)
  Receive Date: 20210211
  Receipt Date: 20210218
  Transmission Date: 20210420
  Serious: Yes (Other)
  Sender: FDA-Public Use
  Company Number: NVSC2021US024033

PATIENT
  Age: 50 Year
  Sex: Female

DRUGS (1)
  1. KESIMPTA [Suspect]
     Active Substance: OFATUMUMAB
     Indication: RELAPSING MULTIPLE SCLEROSIS
     Dosage: 20 MG, QMO
     Route: 058
     Dates: start: 20201111

REACTIONS (7)
  - Treatment failure [Unknown]
  - Relapsing-remitting multiple sclerosis [Recovering/Resolving]
  - Gait disturbance [Recovering/Resolving]
  - Stress [Not Recovered/Not Resolved]
  - Mental disorder [Unknown]
  - Optic neuritis [Recovering/Resolving]
  - Visual impairment [Unknown]

NARRATIVE: CASE EVENT DATE: 20210101
